FAERS Safety Report 8257428 (Version 2)
Quarter: 2012Q4

REPORT INFORMATION
  Report Type: 
  Country: US (occurrence: US)
  Receive Date: 20111121
  Receipt Date: 20120926
  Transmission Date: 20130627
  Serious: No
  Sender: FDA-Public Use
  Company Number: US-US-EMD SERONO, INC.-7096159

PATIENT
  Sex: Male

DRUGS (2)
  1. REBIF [Suspect]
     Indication: PRODUCT USED FOR UNKNOWN INDICATION
     Dates: start: 20040611, end: 200904
  2. REBIF [Suspect]
     Route: 058
     Dates: start: 20100115

REACTIONS (1)
  - Injection site erythema [Recovering/Resolving]
